FAERS Safety Report 15401414 (Version 2)
Quarter: 2018Q4

REPORT INFORMATION
  Report Type: Spontaneous
  Country: JP (occurrence: JP)
  Receive Date: 20180919
  Receipt Date: 20181009
  Transmission Date: 20190204
  Serious: Yes (Death)
  Sender: FDA-Public Use
  Company Number: PHHY2018JP095626

PATIENT
  Age: 9 Year
  Sex: Male

DRUGS (12)
  1. IDARUBICIN [Suspect]
     Active Substance: IDARUBICIN
     Indication: ACUTE MYELOID LEUKAEMIA
     Dosage: 10 MG/M2, UNK (ON DAY 1)
     Route: 065
  2. FILGRASTIM [Suspect]
     Active Substance: FILGRASTIM
     Indication: ACUTE MYELOID LEUKAEMIA
     Dosage: 400 MG/M2, UNK (FROM DAY 0)
     Route: 065
  3. CYTARABINE. [Suspect]
     Active Substance: CYTARABINE
     Indication: ACUTE MYELOID LEUKAEMIA
     Dosage: 200 MG/M2, Q12H (DAYS 6-12)
     Route: 065
  4. CYTARABINE. [Suspect]
     Active Substance: CYTARABINE
     Dosage: 2 G/M2, BID (DAYS 1-4)
     Route: 065
  5. ETOPOSIDE. [Suspect]
     Active Substance: ETOPOSIDE
     Indication: ACUTE MYELOID LEUKAEMIA
     Dosage: 150 MG/M2, UNK (DAYS 1-5)
     Route: 065
  6. MITOXANTRONE [Suspect]
     Active Substance: MITOXANTRONE HYDROCHLORIDE
     Indication: ACUTE MYELOID LEUKAEMIA
     Dosage: 5 MG/M2, UNK (DAYS 6-10)
     Route: 065
  7. VORICONAZOLE. [Suspect]
     Active Substance: VORICONAZOLE
     Indication: ANTIFUNGAL PROPHYLAXIS
     Dosage: 10 MG/KG, QD
     Route: 048
  8. ETOPOSIDE. [Suspect]
     Active Substance: ETOPOSIDE
     Dosage: 100 MG/M2, UNK (DAYS 1-5)
     Route: 065
  9. SULFAMETHOXAZOLE AND TRIMETHOPRIM [Concomitant]
     Active Substance: SULFAMETHOXAZOLE\TRIMETHOPRIM
     Indication: ANTIFUNGAL PROPHYLAXIS
     Dosage: UNK
     Route: 065
  10. CYTARABINE. [Suspect]
     Active Substance: CYTARABINE
     Dosage: 3 G/M2, BID (DAYS 1-3)
     Route: 065
  11. FLUDARABINE [Suspect]
     Active Substance: FLUDARABINE PHOSPHATE
     Indication: ACUTE MYELOID LEUKAEMIA
     Dosage: 30 MG/M2, UNK (ON DAYS 1-4)
     Route: 065
  12. IDARUBICIN [Suspect]
     Active Substance: IDARUBICIN
     Dosage: 12 MG/M2, UNK (DAY 2-4)
     Route: 065

REACTIONS (3)
  - Acute myeloid leukaemia recurrent [Fatal]
  - Mucormycosis [Fatal]
  - Pneumonia fungal [Fatal]
